FAERS Safety Report 4907173-2 (Version None)
Quarter: 2006Q1

REPORT INFORMATION
  Report Type: 
  Country: None (occurrence: None)
  Receive Date: 20060206
  Receipt Date: 20060124
  Transmission Date: 20060701
  Serious: Yes (Hospitalization)
  Sender: FDA-Public Use
  Company Number: HQWYE504326JAN06

PATIENT
  Age: 53 Year
  Sex: Female

DRUGS (10)
  1. CORDARONE [Suspect]
     Indication: ATRIAL FIBRILLATION
     Dosage: 200 MG 5X PER 1 WK ORAL
     Route: 048
     Dates: start: 20031001, end: 20051107
  2. CORDARONE [Suspect]
     Indication: ATRIAL FLUTTER
     Dosage: 200 MG 5X PER 1 WK ORAL
     Route: 048
     Dates: start: 20031001, end: 20051107
  3. ISOPTIN [Suspect]
     Indication: ATRIAL FIBRILLATION
     Dosage: 120 MG 1X PER 1 DAY ORAL
     Route: 048
     Dates: start: 20031001, end: 20051107
  4. ISOPTIN [Suspect]
     Indication: ATRIAL FLUTTER
     Dosage: 120 MG 1X PER 1 DAY ORAL
     Route: 048
     Dates: start: 20031001, end: 20051107
  5. CITALOPRAM HYDROBROMIDE [Suspect]
     Dosage: 10 MG 1X PER 1 DAY ORAL
     Route: 048
     Dates: start: 20041001, end: 20051107
  6. SINTROM [Concomitant]
  7. OMEPRAZOLE [Concomitant]
  8. ZOLPIDEM TARTRATE [Concomitant]
  9. LORAZEPAM [Concomitant]
  10. ACETAMINOPHEN [Concomitant]

REACTIONS (10)
  - ATRIOVENTRICULAR BLOCK COMPLETE [None]
  - CHEST PAIN [None]
  - DRUG INTERACTION [None]
  - ELECTROCARDIOGRAM QT CORRECTED INTERVAL PROLONGED [None]
  - ELECTROCARDIOGRAM QT PROLONGED [None]
  - NAUSEA [None]
  - SINUS BRADYCARDIA [None]
  - TETANY [None]
  - TROPONIN INCREASED [None]
  - VOMITING [None]
